FAERS Safety Report 8462813-9 (Version None)
Quarter: 2012Q2

REPORT INFORMATION
  Report Type: 
  Country: None (occurrence: None)
  Receive Date: 20120625
  Receipt Date: 20120620
  Transmission Date: 20120825
  Serious: Yes (Hospitalization)
  Sender: FDA-Public Use
  Company Number: PHHY2012TR052760

PATIENT
  Age: 55 Year
  Sex: Male

DRUGS (1)
  1. LEVOFLOXACIN [Suspect]
     Dosage: 500 MG
     Route: 051

REACTIONS (7)
  - CONFUSIONAL STATE [None]
  - PSYCHOTIC DISORDER [None]
  - IRRITABILITY [None]
  - DISORIENTATION [None]
  - HALLUCINATIONS, MIXED [None]
  - PSYCHOMOTOR HYPERACTIVITY [None]
  - DELIRIUM [None]
